FAERS Safety Report 5596616-X (Version None)
Quarter: 2008Q1

REPORT INFORMATION
  Report Type: 
  Country: None (occurrence: None)
  Receive Date: 20080118
  Receipt Date: 20080107
  Transmission Date: 20080703
  Serious: Yes (Other)
  Sender: FDA-Public Use
  Company Number: US-PFIZER INC-2008002928

PATIENT
  Sex: Male

DRUGS (5)
  1. CHANTIX [Suspect]
     Indication: SMOKING CESSATION THERAPY
     Dates: start: 20071224, end: 20071229
  2. LORAZEPAM [Concomitant]
  3. ATENOLOL [Concomitant]
  4. HYDROCHLOROTHIAZIDE [Concomitant]
  5. LOVASTATIN [Concomitant]

REACTIONS (5)
  - BLOOD PRESSURE INCREASED [None]
  - DEHYDRATION [None]
  - DIARRHOEA [None]
  - MUSCULAR WEAKNESS [None]
  - WEIGHT DECREASED [None]
